FAERS Safety Report 5494698-7 (Version None)
Quarter: 2007Q4

REPORT INFORMATION
  Report Type: 
  Country: None (occurrence: None)
  Receive Date: 20071015
  Receipt Date: 20070829
  Transmission Date: 20080405
  Serious: No
  Sender: FDA-Public Use
  Company Number: 2007SP003029

PATIENT
  Age: 72 Year
  Sex: Female
  Weight: 68.0396 kg

DRUGS (9)
  1. LUNESTA [Suspect]
     Indication: INSOMNIA
     Dosage: 2 MG; HS; ORAL
     Route: 048
     Dates: start: 20070701, end: 20070801
  2. NEURONTIN [Concomitant]
  3. OXYCODONE HCL [Concomitant]
  4. CLONAZEPAM [Concomitant]
  5. ATORVASTATIN CALCIUM [Concomitant]
  6. WARFARIN SODIUM [Concomitant]
  7. METFORMIN HCL [Concomitant]
  8. VALSARTAN [Concomitant]
  9. PRILOSEC [Concomitant]

REACTIONS (3)
  - DYSGEUSIA [None]
  - HEADACHE [None]
  - INITIAL INSOMNIA [None]
